FAERS Safety Report 10725876 (Version 1)
Quarter: 2015Q1

REPORT INFORMATION
  Report Type: Spontaneous
  Country: US (occurrence: None)
  Receive Date: 20150116
  Receipt Date: 20150116
  Transmission Date: 20150721
  Serious: Yes (Hospitalization)
  Sender: FDA-Public Use
  Company Number: SP08620

PATIENT
  Age: 74 Year
  Sex: Female
  Weight: 65.32 kg

DRUGS (2)
  1. XIFAXAN [Suspect]
     Active Substance: RIFAXIMIN
     Indication: AMMONIA NORMAL
     Dosage: (550 MG, 1 IN 1 D)
     Route: 048
     Dates: start: 2011
  2. LACTULOSE. [Concomitant]
     Active Substance: LACTULOSE

REACTIONS (3)
  - Ammonia increased [None]
  - Vertigo [None]
  - Economic problem [None]

NARRATIVE: CASE EVENT DATE: 2011
